FAERS Safety Report 22790018 (Version 5)
Quarter: 2023Q4

REPORT INFORMATION
  Report Type: Spontaneous
  Country: US (occurrence: US)
  Receive Date: 20230804
  Receipt Date: 20231023
  Transmission Date: 20240109
  Serious: Yes (Other)
  Sender: FDA-Public Use
  Company Number: US-BRISTOL-MYERS SQUIBB COMPANY-2023-108809

PATIENT
  Age: 77 Year
  Sex: Male

DRUGS (5)
  1. POMALYST [Suspect]
     Active Substance: POMALIDOMIDE
     Indication: Plasma cell myeloma
     Route: 048
     Dates: start: 20230417
  2. POMALYST [Suspect]
     Active Substance: POMALIDOMIDE
     Dosage: DAILY, FREQUENCY: 21, DAY 1-21, 28 DAY CYCLE
     Route: 048
     Dates: start: 20230501
  3. POMALYST [Suspect]
     Active Substance: POMALIDOMIDE
     Route: 048
  4. POMALYST [Suspect]
     Active Substance: POMALIDOMIDE
     Dosage: ONCE EVERY OTHER DAY
     Route: 048
     Dates: end: 20230807
  5. ACYCLOVIR [Concomitant]
     Active Substance: ACYCLOVIR
     Indication: Plasma cell myeloma

REACTIONS (9)
  - Rash [Recovered/Resolved]
  - Dyspnoea [Recovering/Resolving]
  - Oedema peripheral [Recovering/Resolving]
  - Skin infection [Recovering/Resolving]
  - Pruritus [Recovered/Resolved]
  - Drug ineffective [Unknown]
  - Off label use [Unknown]
  - Malignant neoplasm progression [Unknown]
  - Cellulitis [Unknown]

NARRATIVE: CASE EVENT DATE: 20230501
